FAERS Safety Report 5519413-X (Version None)
Quarter: 2007Q4

REPORT INFORMATION
  Report Type: 
  Country: None (occurrence: None)
  Receive Date: 20071116
  Receipt Date: 20071106
  Transmission Date: 20080405
  Serious: Yes (Hospitalization)
  Sender: FDA-Public Use
  Company Number: US-WYE-H00748007

PATIENT
  Sex: Female
  Weight: 90.1 kg

DRUGS (5)
  1. TEMSIROLIMUS [Suspect]
     Indication: GLIOMA
     Route: 042
     Dates: start: 20070828
  2. HUMALOG [Concomitant]
     Indication: DIABETES MELLITUS
     Dosage: UNKNOWN
     Dates: start: 20070911
  3. LANTUS [Concomitant]
     Indication: DIABETES MELLITUS
     Dosage: UNKNOWN
     Dates: start: 20070911
  4. DECADRON [Suspect]
     Indication: PROPHYLAXIS
     Dosage: UNKNOWN
     Dates: start: 20070701
  5. FAMOTIDINE [Concomitant]
     Indication: ANTACID THERAPY
     Dosage: UNKNOWN
     Dates: start: 20070701

REACTIONS (1)
  - ABSCESS [None]
